FAERS Safety Report 24768230 (Version 5)
Quarter: 2025Q1

REPORT INFORMATION
  Report Type: Report from Study
  Country: PT (occurrence: PT)
  Receive Date: 20241223
  Receipt Date: 20250213
  Transmission Date: 20250409
  Serious: Yes (Hospitalization, Other)
  Sender: ABBVIE
  Company Number: PT-ABBVIE-6058327

PATIENT
  Age: 64 Year
  Sex: Male

DRUGS (19)
  1. CARBIDOPA\LEVODOPA [Suspect]
     Active Substance: CARBIDOPA\LEVODOPA
     Indication: Parkinson^s disease
     Route: 058
     Dates: start: 202411
  2. CARBIDOPA\LEVODOPA [Suspect]
     Active Substance: CARBIDOPA\LEVODOPA
     Route: 058
     Dates: start: 20241111
  3. MEMANTINE [Concomitant]
     Active Substance: MEMANTINE
     Indication: Product used for unknown indication
  4. Neurobion (vitamins B12, B6 and B1) [Concomitant]
     Indication: Product used for unknown indication
  5. Symprove (L. rhamnosus; L. acidophilus; L. plantarum; E. faecium) [Concomitant]
     Indication: Product used for unknown indication
  6. Gutron (midodrine) [Concomitant]
     Indication: Orthostatic hypotension
  7. MELATONIN [Concomitant]
     Active Substance: MELATONIN
     Indication: Product used for unknown indication
  8. Xadago (safinamide) [Concomitant]
     Indication: Parkinson^s disease
  9. Alzen [Concomitant]
     Indication: Agitation
  10. DULOXETINE [Concomitant]
     Active Substance: DULOXETINE
     Indication: Product used for unknown indication
  11. ESOMEPRAZOLE [Concomitant]
     Active Substance: ESOMEPRAZOLE
     Indication: Product used for unknown indication
  12. DUTASTERIDE [Concomitant]
     Active Substance: DUTASTERIDE
     Indication: Product used for unknown indication
  13. Combodart (Dutasteride;Tamsulosin hydrochloride) [Concomitant]
     Indication: Product used for unknown indication
  14. EXELON [Concomitant]
     Active Substance: RIVASTIGMINE TARTRATE
     Indication: Product used for unknown indication
     Route: 062
  15. POLYETHYLENE GLYCOLS [Concomitant]
     Active Substance: POLYETHYLENE GLYCOLS
     Indication: Product used for unknown indication
  16. RIVOTRIL [Concomitant]
     Active Substance: CLONAZEPAM
     Indication: Product used for unknown indication
  17. MIRTAZAPINE [Concomitant]
     Active Substance: MIRTAZAPINE
     Indication: Product used for unknown indication
  18. DUTASTERIDE [Concomitant]
     Active Substance: DUTASTERIDE
     Indication: Product used for unknown indication
  19. QUETIAPINE [Concomitant]
     Active Substance: QUETIAPINE
     Indication: Agitation

REACTIONS (8)
  - Pneumonia [Recovering/Resolving]
  - Weight decreased [Not Recovered/Not Resolved]
  - Polymerase chain reaction positive [Recovered/Resolved]
  - Dysphagia [Not Recovered/Not Resolved]
  - Anaemia [Not Recovered/Not Resolved]
  - Dyskinesia [Recovering/Resolving]
  - Enteral nutrition [Unknown]
  - Hyperhidrosis [Not Recovered/Not Resolved]

NARRATIVE: CASE EVENT DATE: 20240101
